FAERS Safety Report 7298636-6 (Version None)
Quarter: 2011Q1

REPORT INFORMATION
  Report Type: 
  Country: None (occurrence: None)
  Receive Date: 20110217
  Receipt Date: 20110217
  Transmission Date: 20110831
  Serious: Yes (Death)
  Sender: FDA-Public Use
  Company Number: GB-JNJFOC-20060402457

PATIENT
  Sex: Male
  Weight: 106 kg

DRUGS (19)
  1. DURAGESIC-100 [Suspect]
     Route: 062
  2. DIAZEPAM [Concomitant]
     Route: 065
  3. XODOL [Concomitant]
  4. DURAGESIC-100 [Suspect]
     Route: 062
  5. DURAGESIC-100 [Suspect]
     Route: 062
  6. DURAGESIC-100 [Suspect]
     Dosage: THIS DOSE APPLIED AT 9 AM
     Route: 062
  7. CYCLIZINE [Suspect]
     Indication: ILL-DEFINED DISORDER
     Route: 065
  8. ORAMORPH SR [Concomitant]
     Route: 065
  9. TEMAZEPAM [Suspect]
     Indication: ILL-DEFINED DISORDER
     Route: 065
  10. DURAGESIC-100 [Suspect]
     Dosage: THIS DOSE APPLIED AT 11 AM
     Route: 062
  11. DURAGESIC-100 [Suspect]
     Dosage: THIS DOSE APPLIED AT 11 AM
     Route: 062
  12. DURAGESIC-100 [Suspect]
     Indication: ANALGESIC THERAPY
     Dosage: THIS DOSE APPLIED AT 11 AM
     Route: 062
  13. DURAGESIC-100 [Suspect]
     Route: 062
  14. DURAGESIC-100 [Suspect]
     Route: 062
  15. PIRITON [Suspect]
     Indication: ILL-DEFINED DISORDER
     Route: 065
  16. DURAGESIC-100 [Suspect]
     Indication: HEADACHE
     Dosage: THIS DOSE APPLIED AT 9 AM
     Route: 062
  17. DURAGESIC-100 [Suspect]
     Indication: CROHN'S DISEASE
     Dosage: THIS DOSE APPLIED AT 9 AM
     Route: 062
  18. DURAGESIC-100 [Suspect]
     Route: 062
  19. PREDFOAM [Concomitant]
     Route: 065

REACTIONS (12)
  - PRURITUS [None]
  - HEADACHE [None]
  - CHILLS [None]
  - PHOTOPHOBIA [None]
  - DIZZINESS [None]
  - DYSARTHRIA [None]
  - AMNESIA [None]
  - VISION BLURRED [None]
  - TOXICITY TO VARIOUS AGENTS [None]
  - PNEUMONIA [None]
  - DYSPNOEA [None]
  - DRY MOUTH [None]
